FAERS Safety Report 6398927-7 (Version None)
Quarter: 2009Q4

REPORT INFORMATION
  Report Type: 
  Country: None (occurrence: None)
  Receive Date: 20091013
  Receipt Date: 20090930
  Transmission Date: 20100525
  Serious: Yes (Death, Hospitalization)
  Sender: FDA-Public Use
  Company Number: BR-ELI_LILLY_AND_COMPANY-BR200910000098

PATIENT
  Age: 92 Year
  Sex: Female

DRUGS (1)
  1. FORTEO [Suspect]
     Indication: OSTEOPOROSIS
     Dosage: 20 UG, DAILY (1/D)
     Route: 058
     Dates: start: 20070928, end: 20090917

REACTIONS (8)
  - CELLULITIS [None]
  - DIABETES MELLITUS [None]
  - DYSPNOEA [None]
  - ERYSIPELAS [None]
  - HYPERTENSION [None]
  - INFECTION [None]
  - LYMPHANGITIS [None]
  - SEPTIC SHOCK [None]
